FAERS Safety Report 9734395 (Version 3)
Quarter: 2013Q4

REPORT INFORMATION
  Report Type: Spontaneous
  Country: CH (occurrence: CH)
  Receive Date: 20131206
  Receipt Date: 20131209
  Transmission Date: 20140711
  Serious: Yes (Other)
  Sender: FDA-Public Use
  Company Number: CH-BEH-2012033635

PATIENT
  Age: 52 Year
  Sex: Female

DRUGS (6)
  1. HIZENTRA [Suspect]
     Indication: IMMUNODEFICIENCY
     Route: 058
     Dates: start: 20111025
  2. HIZENTRA [Suspect]
     Dosage: IN AUG-2012
     Route: 058
  3. HIZENTRA [Suspect]
     Dosage: IN AUG-2012
     Route: 058
  4. HIZENTRA [Suspect]
     Dosage: IN AUG-2012
     Route: 058
  5. HIZENTRA [Suspect]
     Dosage: IN AUG-2012
     Route: 058
  6. HIZENTRA [Suspect]
     Route: 058

REACTIONS (8)
  - Sinusitis [Recovered/Resolved]
  - Bronchitis [Recovered/Resolved]
  - Drug ineffective [Recovered/Resolved]
  - Sinusitis [Recovered/Resolved]
  - Bronchitis [Recovered/Resolved]
  - Nasopharyngitis [Recovered/Resolved]
  - Injection site reaction [Not Recovered/Not Resolved]
  - Tracheitis [Not Recovered/Not Resolved]
